FAERS Safety Report 9254391 (Version 2)
Quarter: 2013Q2

REPORT INFORMATION
  Report Type: Spontaneous
  Country: FR (occurrence: None)
  Receive Date: 20130419
  Receipt Date: 20130501
  Transmission Date: 20140414
  Serious: Yes (Other)
  Sender: FDA-Public Use
  Company Number: TPA2013A02830

PATIENT
  Age: 63 Year
  Sex: Male

DRUGS (1)
  1. ADENURIC (FEBUXOSTAT) [Suspect]
     Indication: PRODUCT USED FOR UNKNOWN INDICATION
     Dosage: UNK. (1 IN 1 D)
     Route: 048

REACTIONS (4)
  - Oedema mouth [None]
  - Oedema genital [None]
  - Genital rash [None]
  - Hypersensitivity [None]
